FAERS Safety Report 4309875-8 (Version None)
Quarter: 2004Q1

REPORT INFORMATION
  Report Type: 
  Country: None (occurrence: None)
  Receive Date: 20040303
  Receipt Date: 20040112
  Transmission Date: 20041129
  Serious: No
  Sender: FDA-Public Use
  Company Number: US-BRISTOL-MYERS SQUIBB COMPANY-12476206

PATIENT
  Sex: Male

DRUGS (3)
  1. ABILIFY [Suspect]
  2. ADDERALL 10 [Concomitant]
  3. LITHIUM [Concomitant]

REACTIONS (1)
  - DRUG SCREEN POSITIVE [None]
